FAERS Safety Report 11779203 (Version 2)
Quarter: 2015Q4

REPORT INFORMATION
  Report Type: Spontaneous
  Country: US (occurrence: US)
  Receive Date: 20151125
  Receipt Date: 20151208
  Transmission Date: 20160304
  Serious: Yes (Other)
  Sender: FDA-Public Use
  Company Number: US-TEVA-584010USA

PATIENT
  Sex: Female
  Weight: 105.78 kg

DRUGS (3)
  1. COUMADIN [Concomitant]
     Active Substance: WARFARIN SODIUM
  2. EPOPROSTENOL. [Suspect]
     Active Substance: EPOPROSTENOL
     Indication: PULMONARY ARTERIAL HYPERTENSION
     Dosage: 12 NG/KG/MIN
     Route: 042
     Dates: start: 20150619
  3. LETAIRIS [Concomitant]
     Active Substance: AMBRISENTAN

REACTIONS (10)
  - Injection site rash [Recovered/Resolved]
  - Injection site erythema [Recovered/Resolved]
  - Application site rash [Unknown]
  - Abnormal loss of weight [Unknown]
  - Dysgeusia [Unknown]
  - Injection site rash [Unknown]
  - Nausea [Unknown]
  - Skin disorder [Recovered/Resolved]
  - Infection [Unknown]
  - Blister [Unknown]

NARRATIVE: CASE EVENT DATE: 2015
